FAERS Safety Report 19630171 (Version 2)
Quarter: 2022Q4

REPORT INFORMATION
  Report Type: Spontaneous
  Country: JP (occurrence: JP)
  Receive Date: 20210728
  Receipt Date: 20221004
  Transmission Date: 20230112
  Serious: Yes (Death, Other)
  Sender: FDA-Public Use
  Company Number: JP-PFIZER INC-2021891060

PATIENT
  Age: 59 Year
  Sex: Male
  Weight: 62 kg

DRUGS (1)
  1. LORLATINIB [Suspect]
     Active Substance: LORLATINIB
     Indication: Non-small cell lung cancer
     Dosage: 100 MG, DAILY
     Dates: start: 20190921, end: 20200506

REACTIONS (1)
  - Death [Fatal]

NARRATIVE: CASE EVENT DATE: 20200507
